FAERS Safety Report 10231092 (Version 1)
Quarter: 2014Q2

REPORT INFORMATION
  Report Type: Spontaneous
  Country: US (occurrence: US)
  Receive Date: 20140611
  Receipt Date: 20140611
  Transmission Date: 20141212
  Serious: Yes (Other)
  Sender: FDA-Public Use
  Company Number: US-BAYER-2014-082588

PATIENT
  Age: 64 Year
  Sex: Female

DRUGS (1)
  1. BETASERON [Suspect]
     Dosage: UNK
     Dates: start: 20130301

REACTIONS (2)
  - Amnesia [None]
  - Renal disorder [None]
